FAERS Safety Report 7442357-3 (Version None)
Quarter: 2011Q2

REPORT INFORMATION
  Report Type: 
  Country: None (occurrence: None)
  Receive Date: 20110428
  Receipt Date: 20110427
  Transmission Date: 20111010
  Serious: Yes (Life-Threatening)
  Sender: FDA-Public Use
  Company Number: RO-ROCHE-734701

PATIENT
  Sex: Male

DRUGS (2)
  1. RIBAVIRIN [Suspect]
     Indication: HEPATITIS C
     Dosage: FREQUENCY:DAILY
     Route: 048
     Dates: start: 20100122, end: 20100217
  2. PEGINTERFERON ALFA-2A [Suspect]
     Indication: HEPATITIS C
     Dosage: FREQUENCY:WEEKLY
     Route: 058
     Dates: start: 20100122, end: 20100217

REACTIONS (1)
  - TRANSIENT ISCHAEMIC ATTACK [None]
